FAERS Safety Report 6812354-7 (Version None)
Quarter: 2010Q2

REPORT INFORMATION
  Report Type: 
  Country: None (occurrence: None)
  Receive Date: 20100628
  Receipt Date: 20100616
  Transmission Date: 20101027
  Serious: Yes (Hospitalization)
  Sender: FDA-Public Use
  Company Number: 014015

PATIENT
  Age: 58 Year
  Sex: Male

DRUGS (4)
  1. VIRIDAL (VIRIDAL) [Suspect]
     Dosage: 20 ?G, 20 MCG CARPULES - REFILL INTRACAVERNOUS
  2. ACCUZIDE [Concomitant]
  3. METFORMIN-RATIOPHARM [Concomitant]
  4. GLIBENCLAMID [Concomitant]

REACTIONS (1)
  - TRANSIENT ISCHAEMIC ATTACK [None]
